FAERS Safety Report 18448126 (Version 1)
Quarter: 2020Q4

REPORT INFORMATION
  Report Type: Spontaneous
  Country: DE (occurrence: DE)
  Receive Date: 20201031
  Receipt Date: 20201031
  Transmission Date: 20210114
  Serious: Yes (Other)
  Sender: FDA-Public Use
  Company Number: DE-AUROBINDO-AUR-APL-2019-044594

PATIENT
  Age: 36 Year
  Sex: Male

DRUGS (7)
  1. IMATINIB FILM-COATED TABLET [Suspect]
     Active Substance: IMATINIB MESYLATE
     Indication: LEIOMYOMA
     Dosage: 400 MILLIGRAM, ONCE A DAY
     Route: 065
  2. IMATINIB FILM-COATED TABLET [Suspect]
     Active Substance: IMATINIB MESYLATE
     Indication: PLATELET-DERIVED GROWTH FACTOR RECEPTOR GENE MUTATION
  3. IMATINIB FILM-COATED TABLET [Suspect]
     Active Substance: IMATINIB MESYLATE
     Indication: INFANTILE FIBROMATOSIS
     Dosage: 200 MILLIGRAM, ONCE A DAY,AFTER 4 MONTHS
     Route: 065
  4. IMATINIB FILM-COATED TABLET [Suspect]
     Active Substance: IMATINIB MESYLATE
     Indication: LEIOMYOMA
  5. IMATINIB FILM-COATED TABLET [Suspect]
     Active Substance: IMATINIB MESYLATE
     Indication: INFLAMMATORY MYOFIBROBLASTIC TUMOUR
     Dosage: 300 MILLIGRAM, ONCE A DAY,AFTER 1 MONTH
     Route: 065
  6. IMATINIB FILM-COATED TABLET [Suspect]
     Active Substance: IMATINIB MESYLATE
     Indication: SPINAL CORD NEOPLASM
  7. IMATINIB FILM-COATED TABLET [Suspect]
     Active Substance: IMATINIB MESYLATE
     Indication: SYSTEMIC SCLERODERMA

REACTIONS (12)
  - Drug effective for unapproved indication [Unknown]
  - Fatigue [Recovering/Resolving]
  - Product use in unapproved indication [Unknown]
  - Dysgeusia [Recovering/Resolving]
  - Nausea [Recovering/Resolving]
  - Decreased appetite [Recovering/Resolving]
  - Drug intolerance [Recovering/Resolving]
  - Off label use [Unknown]
  - Blood creatine phosphokinase increased [Recovering/Resolving]
  - Muscle spasms [Recovering/Resolving]
  - Therapeutic response decreased [Recovering/Resolving]
  - Drug ineffective [Unknown]
